FAERS Safety Report 6101767-7 (Version None)
Quarter: 2009Q1

REPORT INFORMATION
  Report Type: 
  Country: None (occurrence: None)
  Receive Date: 20090303
  Receipt Date: 20090303
  Transmission Date: 20090719
  Serious: Yes (Life-Threatening)
  Sender: FDA-Public Use
  Company Number: None

PATIENT
  Age: 60 Year
  Sex: Male
  Weight: 104.3273 kg

DRUGS (1)
  1. UROXATRAL 10 MG SANOFI ADVENTIS [Suspect]
     Indication: BENIGN PROSTATIC HYPERPLASIA
     Dosage: 10 MG DAILY 1 Q DAY PO
     Route: 048
     Dates: start: 20090209, end: 20090210

REACTIONS (1)
  - HAEMORRHAGE SUBCUTANEOUS [None]
